FAERS Safety Report 5753353-6 (Version None)
Quarter: 2008Q2

REPORT INFORMATION
  Report Type: 
  Country: None (occurrence: None)
  Receive Date: 20080530
  Receipt Date: 20080526
  Transmission Date: 20081010
  Serious: Yes (Life-Threatening, Hospitalization, Other)
  Sender: FDA-Public Use
  Company Number: CZ-BRISTOL-MYERS SQUIBB COMPANY-13817465

PATIENT
  Age: 67 Year
  Sex: Male

DRUGS (14)
  1. SPRYCEL [Suspect]
     Indication: CHRONIC MYELOID LEUKAEMIA
     Route: 048
     Dates: start: 20070412, end: 20070607
  2. ISOPTIN [Suspect]
     Dates: start: 20070617, end: 20070622
  3. CEFUROXIME [Concomitant]
     Route: 048
  4. ITRACONAZOLE [Concomitant]
     Route: 048
     Dates: start: 20070617, end: 20070723
  5. PRESTARIUM [Concomitant]
     Route: 048
     Dates: start: 20070610
  6. HYDROCHLOROTHIAZIDE [Concomitant]
     Route: 048
  7. CLARITIN [Concomitant]
     Route: 048
  8. HYDROXYUREA [Concomitant]
     Route: 048
  9. TRIAMCINOLONE [Concomitant]
     Route: 048
  10. MAGNESIUM [Concomitant]
     Route: 048
  11. MILURIT [Concomitant]
     Dosage: 10JUNE06-CONT
     Dates: start: 20061101
  12. FURON [Concomitant]
     Dates: start: 20070301, end: 20070619
  13. ZYRTEC [Concomitant]
     Dates: start: 20070328, end: 20070608
  14. TENORMIN [Concomitant]
     Dates: start: 20070301, end: 20070610

REACTIONS (10)
  - ATRIAL FLUTTER [None]
  - ATRIOVENTRICULAR BLOCK FIRST DEGREE [None]
  - ATRIOVENTRICULAR BLOCK SECOND DEGREE [None]
  - CARDIOPULMONARY FAILURE [None]
  - ELECTROCARDIOGRAM QT PROLONGED [None]
  - ERYSIPELAS [None]
  - GENERALISED OEDEMA [None]
  - HYDROTHORAX [None]
  - HYPERTENSION [None]
  - RASH [None]
